FAERS Safety Report 8054077 (Version 3)
Quarter: 2012Q4

REPORT INFORMATION
  Report Type: Spontaneous
  Country: US (occurrence: None)
  Receive Date: 20110705
  Receipt Date: 20120912
  Transmission Date: 20130627
  Serious: Yes (Other)
  Sender: FDA-Public Use
  Company Number: 2011MA007911

PATIENT
  Sex: Female
  Weight: 68.04 kg

DRUGS (28)
  1. METOCLOPRAMIDE [Suspect]
     Indication: OESOPHAGEAL SPASM
     Dates: start: 198506, end: 20051103
  2. ACIDOPHILLUS [Concomitant]
  3. ALCAN [Concomitant]
  4. AMANTADINE HYDROCHLORIDE [Concomitant]
  5. ARTANE [Concomitant]
  6. ASPIRIN [Concomitant]
  7. VITAMINS NOS [Concomitant]
  8. CLOZARIL [Concomitant]
  9. COGENTIN [Concomitant]
  10. COLACE [Concomitant]
  11. COZAAR [Concomitant]
  12. DETROL [Concomitant]
  13. DILTIAZEM HYDROCHLORIDE [Concomitant]
  14. DIPHENHYDRAMINE HYDROCHLORIDE [Concomitant]
  15. FISH OIL [Concomitant]
  16. HALDOL [Concomitant]
  17. HYOSCYAMINE [Concomitant]
  18. LAMISIL [Concomitant]
  19. LEVBID [Concomitant]
  20. LIPITOR [Concomitant]
  21. PREVACID [Concomitant]
  22. PROZAC [Concomitant]
  23. TETRABENAZINE [Concomitant]
  24. VALIUM [Concomitant]
  25. VIGAMOX [Concomitant]
  26. WELLBUTRIN [Concomitant]
  27. XANAX [Concomitant]
  28. ZETIA [Concomitant]

REACTIONS (22)
  - Tardive dyskinesia [None]
  - Dystonia [None]
  - Extrapyramidal disorder [None]
  - Dyskinesia [None]
  - Tremor [None]
  - Movement disorder [None]
  - Dysphagia [None]
  - Choking [None]
  - Weight decreased [None]
  - Resting tremor [None]
  - Parkinsonism [None]
  - Economic problem [None]
  - Scar [None]
  - Hypophagia [None]
  - Cerebral ventricle dilatation [None]
  - Nuclear magnetic resonance imaging brain abnormal [None]
  - Rash macular [None]
  - Gait disturbance [None]
  - Muscular weakness [None]
  - Speech disorder [None]
  - Lumbar spinal stenosis [None]
  - Post procedural complication [None]
